FAERS Safety Report 8499627-X (Version None)
Quarter: 2012Q3

REPORT INFORMATION
  Report Type: 
  Country: None (occurrence: None)
  Receive Date: 20120710
  Receipt Date: 20120703
  Transmission Date: 20120928
  Serious: Yes (Death)
  Sender: FDA-Public Use
  Company Number: US-ASTELLAS-2012US006027

PATIENT
  Age: 82 Year
  Sex: Female
  Weight: 82 kg

DRUGS (2)
  1. DRUGS USED IN DIABETES [Concomitant]
     Indication: DIABETES MELLITUS
     Dosage: UNK
     Route: 065
  2. ERLOTINIB HYDROCHLORIDE [Suspect]
     Indication: NON-SMALL CELL LUNG CANCER
     Dosage: 150 MG, UID/QD
     Route: 048
     Dates: start: 20120512

REACTIONS (6)
  - ADVERSE REACTION [None]
  - DYSPEPSIA [None]
  - FATIGUE [None]
  - ASTHENIA [None]
  - RASH [None]
  - DIARRHOEA [None]
